FAERS Safety Report 8604325-5 (Version None)
Quarter: 2012Q3

REPORT INFORMATION
  Report Type: 
  Country: None (occurrence: None)
  Receive Date: 20120808
  Receipt Date: 20120808
  Transmission Date: 20120928
  Serious: No
  Sender: FDA-Public Use
  Company Number: None

PATIENT

DRUGS (1)
  1. FLUORIDE [Suspect]

REACTIONS (8)
  - MUSCULAR WEAKNESS [None]
  - TOXICITY TO VARIOUS AGENTS [None]
  - PRURITUS [None]
  - VISUAL IMPAIRMENT [None]
  - BARRETT'S OESOPHAGUS [None]
  - TINNITUS [None]
  - HEADACHE [None]
  - VISUAL ACUITY REDUCED [None]
